FAERS Safety Report 4299624-4 (Version None)
Quarter: 2004Q1

REPORT INFORMATION
  Report Type: 
  Country: None (occurrence: None)
  Receive Date: 20040217
  Receipt Date: 20040130
  Transmission Date: 20041129
  Serious: Yes (Hospitalization, Other)
  Sender: FDA-Public Use
  Company Number: 2003123666

PATIENT
  Age: 40 Year
  Sex: Female
  Weight: 44 kg

DRUGS (3)
  1. VIAGRA [Suspect]
     Indication: PULMONARY HYPERTENSION
     Dosage: 50 MG (UNKNOWN), ORAL
     Route: 048
     Dates: start: 20031005
  2. EPOPROSTENOL SODIUM (EPOPROSTENOL SODIUM) [Suspect]
     Indication: PULMONARY HYPERTENSION
     Dosage: 1.22 MG, INTRAVENOUS
     Route: 042
     Dates: start: 20030317
  3. WARFARIN SODIUM [Suspect]
     Indication: THROMBOSIS PROPHYLAXIS
     Dosage: 1.5 MG (DAILY), ORAL
     Route: 048
     Dates: start: 20021208, end: 20031208

REACTIONS (6)
  - ANAEMIA [None]
  - DRUG INTERACTION [None]
  - HEADACHE [None]
  - MALAISE [None]
  - MENORRHAGIA [None]
  - TACHYCARDIA [None]
